FAERS Safety Report 6358244-8 (Version None)
Quarter: 2009Q3

REPORT INFORMATION
  Report Type: 
  Country: None (occurrence: None)
  Receive Date: 20090911
  Receipt Date: 20090901
  Transmission Date: 20100115
  Serious: Yes (Other)
  Sender: FDA-Public Use
  Company Number: ADR18322009

PATIENT
  Age: 47 Year
  Sex: Male

DRUGS (4)
  1. .. [Concomitant]
  2. GLIMEPIRIDE [Suspect]
  3. ACETAMINOPHEN [Concomitant]
  4. PARALGIN FORTE [Concomitant]

REACTIONS (1)
  - ACUTE HEPATIC FAILURE [None]
